FAERS Safety Report 14716775 (Version 1)
Quarter: 2018Q2

REPORT INFORMATION
  Report Type: Spontaneous
  Country: HN (occurrence: HN)
  Receive Date: 20180404
  Receipt Date: 20180404
  Transmission Date: 20180711
  Serious: Yes (Death)
  Sender: FDA-Public Use
  Company Number: HN-PFIZER INC-2018132189

PATIENT
  Age: 75 Year
  Sex: Male

DRUGS (11)
  1. VORICONAZOLE. [Suspect]
     Active Substance: VORICONAZOLE
     Indication: PRODUCTIVE COUGH
  2. AMPHOTERICIN B. [Suspect]
     Active Substance: AMPHOTERICIN B
     Indication: PENICILLIUM INFECTION
     Dosage: UNK
  3. AMPHOTERICIN B. [Suspect]
     Active Substance: AMPHOTERICIN B
     Indication: MALAISE
  4. VORICONAZOLE. [Suspect]
     Active Substance: VORICONAZOLE
     Indication: MALAISE
  5. MICAFUNGIN [Suspect]
     Active Substance: MICAFUNGIN
     Indication: PENICILLIUM INFECTION
     Dosage: UNK
  6. ISAVUCONAZOLE [Suspect]
     Active Substance: ISAVUCONAZOLE
     Indication: PRODUCTIVE COUGH
     Dosage: UNK
  7. MICAFUNGIN [Suspect]
     Active Substance: MICAFUNGIN
     Indication: PRODUCTIVE COUGH
  8. MICAFUNGIN [Suspect]
     Active Substance: MICAFUNGIN
     Indication: MALAISE
  9. VORICONAZOLE. [Suspect]
     Active Substance: VORICONAZOLE
     Indication: PENICILLIUM INFECTION
     Dosage: UNK
  10. ISAVUCONAZOLE [Suspect]
     Active Substance: ISAVUCONAZOLE
     Indication: MALAISE
     Dosage: UNK, DAILY
  11. AMPHOTERICIN B. [Suspect]
     Active Substance: AMPHOTERICIN B
     Indication: PRODUCTIVE COUGH

REACTIONS (1)
  - Drug ineffective [Fatal]
